FAERS Safety Report 19741732 (Version 2)
Quarter: 2021Q3

REPORT INFORMATION
  Report Type: Spontaneous
  Country: US (occurrence: US)
  Receive Date: 20210825
  Receipt Date: 20210908
  Transmission Date: 20211014
  Serious: No
  Sender: FDA-Public Use
  Company Number: US-ELI_LILLY_AND_COMPANY-US202108001258

PATIENT
  Sex: Female
  Weight: 52.34 kg

DRUGS (5)
  1. TADALAFIL. [Suspect]
     Active Substance: TADALAFIL
     Indication: PRODUCT USED FOR UNKNOWN INDICATION
     Dosage: UNK UNK, UNKNOWN
     Route: 065
     Dates: start: 20210712
  2. ORENITRAM [Suspect]
     Active Substance: TREPROSTINIL
     Indication: PULMONARY ARTERIAL HYPERTENSION
     Dosage: 0.25 MG, EVERY 8 HRS
     Route: 048
     Dates: start: 20210310
  3. ELIQUIS [Concomitant]
     Active Substance: APIXABAN
     Indication: PRODUCT USED FOR UNKNOWN INDICATION
  4. ORENITRAM [Suspect]
     Active Substance: TREPROSTINIL
     Dosage: 0.25 MG, BID
     Route: 048
     Dates: start: 20210310
  5. WARFARIN [Concomitant]
     Active Substance: WARFARIN
     Indication: PRODUCT USED FOR UNKNOWN INDICATION

REACTIONS (9)
  - Tinnitus [Unknown]
  - Muscle spasms [Unknown]
  - Pain in extremity [Not Recovered/Not Resolved]
  - Tremor [Unknown]
  - Dizziness [Unknown]
  - Musculoskeletal pain [Not Recovered/Not Resolved]
  - Nervousness [Unknown]
  - Pain [Unknown]
  - Balance disorder [Unknown]
